FAERS Safety Report 6237725-1 (Version None)
Quarter: 2009Q2

REPORT INFORMATION
  Report Type: 
  Country: None (occurrence: None)
  Receive Date: 20090617
  Receipt Date: 20090605
  Transmission Date: 20091009
  Serious: Yes (Life-Threatening)
  Sender: FDA-Public Use
  Company Number: 2009AL003879

PATIENT
  Age: 38 Year
  Sex: Male

DRUGS (3)
  1. TRAMADOL HYDROCHLORIDE [Suspect]
     Indication: BACK PAIN
     Dosage: 100 MG; PO
     Route: 048
     Dates: start: 20090515, end: 20090516
  2. IBUPROFEN [Concomitant]
  3. CODEINE [Concomitant]

REACTIONS (2)
  - SWOLLEN TONGUE [None]
  - URTICARIA [None]
